FAERS Safety Report 14234207 (Version 1)
Quarter: 2017Q4

REPORT INFORMATION
  Report Type: Spontaneous
  Country: US (occurrence: US)
  Receive Date: 20171129
  Receipt Date: 20171129
  Transmission Date: 20180321
  Serious: No
  Sender: FDA-Public Use
  Company Number: US-JNJFOC-20171028780

PATIENT
  Age: 5 Year
  Sex: Male
  Weight: 14.97 kg

DRUGS (3)
  1. CHILDRENS MOTRIN [Suspect]
     Active Substance: IBUPROFEN
     Route: 065
  2. CHILDRENS MOTRIN [Suspect]
     Active Substance: IBUPROFEN
     Indication: PYREXIA
     Route: 065
     Dates: start: 201710
  3. CHILDREN^S ZYRTEC ALLERGY 24 HOUR BUBBLE GUM SYRUP [Concomitant]
     Indication: MULTIPLE ALLERGIES
     Dosage: AROUND MIDNIGHT ON EITHER 19-OCT-2017 OR 20-OCT-2017
     Route: 065
     Dates: start: 201710

REACTIONS (1)
  - Incorrect dose administered [Unknown]

NARRATIVE: CASE EVENT DATE: 201710
